FAERS Safety Report 21831604 (Version 1)
Quarter: 2023Q1

REPORT INFORMATION
  Report Type: Spontaneous
  Country: US (occurrence: None)
  Receive Date: 20230106
  Receipt Date: 20230106
  Transmission Date: 20230417
  Serious: Yes (Other)
  Sender: FDA-Public Use
  Company Number: None

PATIENT
  Age: 39 Year
  Sex: Female

DRUGS (9)
  1. TROSPIUM [Suspect]
     Active Substance: TROSPIUM
     Indication: Hypertonic bladder
     Dosage: FREQUENCY : TWICE A DAY;?
     Route: 048
     Dates: start: 20221219
  2. TREMFYA [Concomitant]
     Active Substance: GUSELKUMAB
  3. CLONOPIN [Concomitant]
     Active Substance: CLONAZEPAM
  4. VITAMIN D [Concomitant]
     Active Substance: VITAMIN D NOS
  5. MAGNESIUM [Concomitant]
     Active Substance: MAGNESIUM
  6. turkey tail mushrooms [Concomitant]
  7. HERBALS\WITHANIA SOMNIFERA ROOT [Concomitant]
     Active Substance: HERBALS\WITHANIA SOMNIFERA ROOT
  8. beet root [Concomitant]
  9. COLLAGEN [Concomitant]
     Active Substance: COLLAGEN

REACTIONS (1)
  - Hypertension [None]

NARRATIVE: CASE EVENT DATE: 20221226
